FAERS Safety Report 5058223-7 (Version None)
Quarter: 2006Q3

REPORT INFORMATION
  Report Type: 
  Country: None (occurrence: None)
  Receive Date: 20060721
  Receipt Date: 20060623
  Transmission Date: 20061208
  Serious: Yes (Other)
  Sender: FDA-Public Use
  Company Number: US-BRACCO-BDI-008370

PATIENT
  Age: 83 Year
  Sex: Female
  Weight: 45.45 kg

DRUGS (3)
  1. ISOVUE-300 [Suspect]
     Indication: BACK PAIN
     Route: 037
     Dates: start: 20060621, end: 20060621
  2. ISOVUE-300 [Suspect]
     Route: 037
     Dates: start: 20060621, end: 20060621
  3. ISOVUE-300 [Suspect]
     Route: 037
     Dates: start: 20060621, end: 20060621

REACTIONS (4)
  - BRAIN OEDEMA [None]
  - DEPRESSED LEVEL OF CONSCIOUSNESS [None]
  - HYPOTONIA [None]
  - PAIN IN EXTREMITY [None]
